FAERS Safety Report 24200837 (Version 1)
Quarter: 2024Q3

REPORT INFORMATION
  Report Type: Report from Study
  Country: DE (occurrence: DE)
  Receive Date: 20240812
  Receipt Date: 20240812
  Transmission Date: 20241017
  Serious: Yes (Death)
  Sender: CSL BEHRING
  Company Number: DE-BEH-2024174766

PATIENT
  Age: 82 Year
  Sex: Male
  Weight: 99 kg

DRUGS (11)
  1. PRIVIGEN [Suspect]
     Active Substance: HUMAN IMMUNOGLOBULIN G
     Indication: Waldenstrom^s macroglobulinaemia stage III
     Dosage: 10 G
     Route: 042
     Dates: start: 20231025, end: 20231025
  2. PRIVIGEN [Suspect]
     Active Substance: HUMAN IMMUNOGLOBULIN G
     Dosage: 10 G
     Route: 042
     Dates: start: 20231128, end: 20231128
  3. PRIVIGEN [Suspect]
     Active Substance: HUMAN IMMUNOGLOBULIN G
     Dosage: 10 G
     Route: 042
     Dates: start: 20231228, end: 20231228
  4. PRIVIGEN [Suspect]
     Active Substance: HUMAN IMMUNOGLOBULIN G
     Dosage: 10 G
     Route: 042
     Dates: start: 20240125, end: 20240125
  5. PRIVIGEN [Suspect]
     Active Substance: HUMAN IMMUNOGLOBULIN G
     Dosage: 10 G
     Route: 042
     Dates: start: 20240326, end: 20240326
  6. PRIVIGEN [Suspect]
     Active Substance: HUMAN IMMUNOGLOBULIN G
     Dosage: 10 G
     Route: 042
     Dates: start: 20240425, end: 20240425
  7. BISOPROLOL [Concomitant]
     Active Substance: BISOPROLOL\BISOPROLOL FUMARATE
  8. COTRIMOXAZOLE [Concomitant]
     Active Substance: SULFAMETHOXAZOLE\TRIMETHOPRIM
  9. EXJADE [Concomitant]
     Active Substance: DEFERASIROX
  10. PANTOPRAZOLE [Concomitant]
     Active Substance: PANTOPRAZOLE
  11. DECITABINE [Concomitant]
     Active Substance: DECITABINE

REACTIONS (3)
  - Pulmonary sepsis [Fatal]
  - Pancytopenia [Fatal]
  - Off label use [Unknown]

NARRATIVE: CASE EVENT DATE: 20240502
